FAERS Safety Report 11628347 (Version 1)
Quarter: 2015Q4

REPORT INFORMATION
  Report Type: Spontaneous
  Country: US (occurrence: US)
  Receive Date: 20151014
  Receipt Date: 20151014
  Transmission Date: 20160304
  Serious: Yes (Death, Other)
  Sender: FDA-Public Use
  Company Number: US-DRREDDYS-USA/USA/15/0053332

PATIENT
  Age: 50 Year
  Sex: Female

DRUGS (4)
  1. MYCOPHENOLATE [Suspect]
     Active Substance: MYCOPHENOLIC ACID
     Indication: IMMUNOSUPPRESSION
     Route: 065
  2. THYMOGLOBULIN [Suspect]
     Active Substance: LAPINE T-LYMPHOCYTE IMMUNE GLOBULIN
     Indication: IMMUNOSUPPRESSION
     Route: 065
  3. TACROLIMUS. [Suspect]
     Active Substance: TACROLIMUS
     Indication: IMMUNOSUPPRESSION
     Route: 065
  4. CYCLOPHOSPHAMIDE. [Concomitant]
     Active Substance: CYCLOPHOSPHAMIDE
     Indication: THROMBOTIC MICROANGIOPATHY
     Route: 065

REACTIONS (10)
  - Candida infection [Fatal]
  - Post transplant lymphoproliferative disorder [Unknown]
  - Transplant rejection [Unknown]
  - Enterococcal bacteraemia [Fatal]
  - Acute kidney injury [Fatal]
  - Hydronephrosis [Unknown]
  - Lymphorrhoea [Fatal]
  - Thrombocytopenia [Unknown]
  - Lymphocele [Unknown]
  - Ureteric perforation [Unknown]
